FAERS Safety Report 4629018-0 (Version None)
Quarter: 2005Q2

REPORT INFORMATION
  Report Type: 
  Country: None (occurrence: None)
  Receive Date: 20050407
  Receipt Date: 20050207
  Transmission Date: 20051028
  Serious: Yes (Life-Threatening)
  Sender: FDA-Public Use
  Company Number: JP-BOEHRINGER INGELHEIM PHARMACEUTICALS, INC.-2005-BP-01874NB

PATIENT
  Sex: Male
  Weight: 68 kg

DRUGS (3)
  1. MICARDIS [Suspect]
     Indication: HYPERTENSION
     Route: 048
     Dates: start: 20031210
  2. EUGLUCON [Concomitant]
     Indication: DIABETES MELLITUS
     Route: 048
     Dates: start: 19990507, end: 20040226
  3. CIBENOL [Concomitant]
     Indication: ARRHYTHMIA
     Route: 048
     Dates: start: 19990618, end: 20040226

REACTIONS (3)
  - ACUTE MYOCARDIAL INFARCTION [None]
  - CORONARY ARTERY ATHEROSCLEROSIS [None]
  - DISEASE PROGRESSION [None]
